FAERS Safety Report 6426137-3 (Version None)
Quarter: 2009Q4

REPORT INFORMATION
  Report Type: 
  Country: None (occurrence: None)
  Receive Date: 20091104
  Receipt Date: 20091026
  Transmission Date: 20100525
  Serious: Yes (Hospitalization)
  Sender: FDA-Public Use
  Company Number: AU-ASTRAZENECA-2009SE22579

PATIENT
  Age: 14851 Day
  Sex: Female

DRUGS (2)
  1. NEXIUM [Suspect]
     Route: 048
     Dates: start: 20090615, end: 20090826
  2. MAXOLON [Suspect]
     Route: 048
     Dates: start: 20090615, end: 20090822

REACTIONS (1)
  - LICHENOID KERATOSIS [None]
